FAERS Safety Report 13403107 (Version 1)
Quarter: 2017Q2

REPORT INFORMATION
  Report Type: Spontaneous
  Country: US (occurrence: US)
  Receive Date: 20170404
  Receipt Date: 20170404
  Transmission Date: 20170830
  Serious: Yes (Death)
  Sender: FDA-Public Use
  Company Number: US-ROCHE-1852784

PATIENT
  Sex: Female

DRUGS (2)
  1. AVASTIN [Suspect]
     Active Substance: BEVACIZUMAB
     Indication: OVARIAN CANCER
     Dosage: AVASTIN 15MG/KG IV EVERY 3 WEEKS
     Route: 042
     Dates: start: 2016, end: 2016
  2. DOXIL [Concomitant]
     Active Substance: DOXORUBICIN HYDROCHLORIDE
     Dosage: UNKNOWN DOSAGE, ROUTE, FREQUENC,Y AND DURATION. CHEMOTHERAPUETIC AGENT
     Route: 065
     Dates: start: 2016, end: 2016

REACTIONS (1)
  - Cardiac failure [Fatal]
